FAERS Safety Report 9219694 (Version 1)
Quarter: 2013Q2

REPORT INFORMATION
  Report Type: Report from Study
  Country: US (occurrence: US)
  Receive Date: 20130409
  Receipt Date: 20130409
  Transmission Date: 20140414
  Serious: No
  Sender: FDA-Public Use
  Company Number: US-VERTEX PHARMACEUTICALS INC.-2013-004574

PATIENT
  Sex: Female

DRUGS (8)
  1. VX-950 (TELAPREVIR) [Suspect]
     Indication: HEPATITIS C
     Dosage: 750 MG, TID
     Route: 048
  2. PEGASYS [Suspect]
     Indication: HEPATITIS C
  3. RIBAVIRIN [Suspect]
     Indication: HEPATITIS C
  4. VITAMIN B-12 [Concomitant]
  5. PROPRANOLOL [Concomitant]
  6. PRILOSEC [Concomitant]
  7. ASPIRIN [Concomitant]
  8. VALACYCLOVIR [Concomitant]

REACTIONS (1)
  - Pruritus [Recovered/Resolved]
